FAERS Safety Report 9015757 (Version 1)
Quarter: 2013Q1

REPORT INFORMATION
  Report Type: Report from Study
  Country: DE (occurrence: DE)
  Receive Date: 20130116
  Receipt Date: 20130116
  Transmission Date: 20140127
  Serious: Yes (Other)
  Sender: FDA-Public Use
  Company Number: DE-BAYER-2012-122106

PATIENT
  Age: 35 Year
  Sex: Female
  Weight: 65 kg

DRUGS (2)
  1. BETAFERON [Suspect]
     Dosage: UNK
  2. BETAFERON [Suspect]
     Dosage: UNK
     Dates: start: 20121108

REACTIONS (13)
  - Skin reaction [None]
  - Injection site erythema [Recovered/Resolved]
  - Injection site rash [Recovered/Resolved]
  - Injection site infection [Recovered/Resolved]
  - Injection site inflammation [Recovered/Resolved]
  - Skin induration [Recovered/Resolved]
  - Injection site pain [Recovered/Resolved]
  - Injection site pain [Recovered/Resolved]
  - Inflammatory pain [Recovered/Resolved]
  - Skin warm [Recovered/Resolved]
  - Dermatitis allergic [None]
  - Abscess [None]
  - Injection site discolouration [None]
